FAERS Safety Report 16394301 (Version 3)
Quarter: 2019Q2

REPORT INFORMATION
  Report Type: Spontaneous
  Country: JP (occurrence: JP)
  Receive Date: 20190605
  Receipt Date: 20190626
  Transmission Date: 20190711
  Serious: Yes (Death, Hospitalization, Other)
  Sender: FDA-Public Use
  Company Number: PHJP2019JP006045

PATIENT
  Age: 85 Year
  Sex: Male

DRUGS (1)
  1. VOTRIENT [Suspect]
     Active Substance: PAZOPANIB HYDROCHLORIDE
     Indication: RENAL CELL CARCINOMA
     Dosage: UNK
     Route: 065

REACTIONS (16)
  - Pneumonia [Fatal]
  - Hypoglycaemia [Recovered/Resolved]
  - Feeding disorder [Recovering/Resolving]
  - Oedema [Unknown]
  - Metastases to bone [Unknown]
  - Malignant neoplasm progression [Unknown]
  - Pleural effusion [Unknown]
  - Sepsis [Fatal]
  - Renal cancer stage III [Unknown]
  - Renal impairment [Unknown]
  - Weight decreased [Unknown]
  - Decreased appetite [Unknown]
  - Respiratory failure [Fatal]
  - Metastases to liver [Unknown]
  - Metastases to adrenals [Unknown]
  - Asthenia [Unknown]
